FAERS Safety Report 12280184 (Version 1)
Quarter: 2016Q2

REPORT INFORMATION
  Report Type: Report from Study
  Country: US (occurrence: US)
  Receive Date: 20160419
  Receipt Date: 20160419
  Transmission Date: 20160815
  Serious: Yes (Other)
  Sender: FDA-Public Use
  Company Number: US-AMGEN-USASL2016047681

PATIENT
  Sex: Female

DRUGS (1)
  1. ENBREL [Suspect]
     Active Substance: ETANERCEPT
     Indication: RHEUMATOID ARTHRITIS
     Dosage: 25 MG, 2 TIMES/WK
     Route: 065
     Dates: start: 200210

REACTIONS (7)
  - Fall [Unknown]
  - Foot fracture [Unknown]
  - Hand fracture [Unknown]
  - Grip strength decreased [Unknown]
  - Disability [Not Recovered/Not Resolved]
  - Rheumatoid arthritis [Unknown]
  - Wrist fracture [Unknown]

NARRATIVE: CASE EVENT DATE: 2011
